FAERS Safety Report 15687194 (Version 5)
Quarter: 2019Q3

REPORT INFORMATION
  Report Type: Spontaneous
  Country: RO (occurrence: RO)
  Receive Date: 20181204
  Receipt Date: 20190828
  Transmission Date: 20191004
  Serious: Yes (Other)
  Sender: FDA-Public Use
  Company Number: PHHY2018RO125528

PATIENT
  Age: 84 Year
  Sex: Female

DRUGS (7)
  1. AMLODIPINE [Suspect]
     Active Substance: AMLODIPINE BESYLATE
     Indication: PRODUCT USED FOR UNKNOWN INDICATION
     Dosage: 10 MG, QD
     Route: 065
  2. CARVEDILOL. [Suspect]
     Active Substance: CARVEDILOL
     Indication: PRODUCT USED FOR UNKNOWN INDICATION
     Dosage: 12.5 MG, QD
     Route: 065
  3. ALFACALCIDOL [Suspect]
     Active Substance: ALFACALCIDOL
     Indication: RENAL IMPAIRMENT
     Dosage: 0.5 MG, QD
     Route: 065
  4. AMIODARONE [Suspect]
     Active Substance: AMIODARONE
     Indication: PRODUCT USED FOR UNKNOWN INDICATION
     Dosage: 200 MG, QD
     Route: 065
  5. APIXABAN [Suspect]
     Active Substance: APIXABAN
     Indication: CEREBROVASCULAR ACCIDENT PROPHYLAXIS
     Dosage: 2.5 MG, BID (ADAPTED TO RENAL FUNCTION0
     Route: 065
  6. APIXABAN [Suspect]
     Active Substance: APIXABAN
     Indication: RENAL IMPAIRMENT
  7. LEVOTHYROXINE. [Suspect]
     Active Substance: LEVOTHYROXINE
     Indication: PRODUCT USED FOR UNKNOWN INDICATION
     Dosage: 100 UG, QD
     Route: 065

REACTIONS (12)
  - Fatigue [Unknown]
  - Oedema peripheral [Recovered/Resolved]
  - Dehydration [Unknown]
  - Dyspnoea exertional [Unknown]
  - Dyspnoea [Unknown]
  - Chronic kidney disease [Unknown]
  - Peripheral swelling [Recovered/Resolved]
  - Blood creatinine increased [Unknown]
  - Hypertension [Unknown]
  - Pleural thickening [Unknown]
  - Diastolic dysfunction [Unknown]
  - Dyslipidaemia [Unknown]
